FAERS Safety Report 8155749-4 (Version None)
Quarter: 2012Q1

REPORT INFORMATION
  Report Type: 
  Country: None (occurrence: None)
  Receive Date: 20120222
  Receipt Date: 20120213
  Transmission Date: 20120608
  Serious: Yes (Other)
  Sender: FDA-Public Use
  Company Number: US-ABBOTT-09P-163-0611550-00

PATIENT
  Sex: Male
  Weight: 90.346 kg

DRUGS (4)
  1. BENICAR [Concomitant]
     Indication: HYPERTENSION
  2. BENADRYL [Concomitant]
     Indication: HYPERSENSITIVITY
  3. AMLODIPINE [Concomitant]
     Indication: HYPERTENSION
  4. HUMIRA [Suspect]
     Indication: CROHN'S DISEASE
     Dates: start: 20090201

REACTIONS (9)
  - TENDERNESS [None]
  - NERVOUS SYSTEM DISORDER [None]
  - WHITE BLOOD CELL COUNT INCREASED [None]
  - CYST [None]
  - PSORIASIS [None]
  - LIPOMA [None]
  - FOLLICULITIS [None]
  - IMPAIRED HEALING [None]
  - LEUKOCYTOSIS [None]
